FAERS Safety Report 9542461 (Version 1)
Quarter: 2013Q2

REPORT INFORMATION
  Report Type: Spontaneous
  Country: US (occurrence: None)
  Receive Date: 20130524
  Receipt Date: 20130524
  Transmission Date: 20140414
  Serious: No
  Sender: FDA-Public Use
  Company Number: PHEH2012US025537

PATIENT
  Age: 48 Year
  Sex: Male

DRUGS (7)
  1. GILENYA (FINGOLIMOD) CAPSULES 0.5MG [Suspect]
     Indication: MULTIPLE SCLEROSIS
     Route: 048
     Dates: start: 20121227
  2. VALIUM (DIAZEPAM) [Concomitant]
  3. GABAPENTIN (GABAPENTIN) 600 MG [Concomitant]
  4. OXYCODONE (OXYCODONE) [Concomitant]
  5. CYMBALTA (DULOXETINE HYDROCHLORIDE) 60MG [Concomitant]
  6. DIAZEPAM (DIAZEPAM) 10MG [Concomitant]
  7. LISINOPRIL HIDROCLOROTIAZIDA (HYDROCHLOROTHIAZIDE, LISINOPRIL) [Concomitant]

REACTIONS (14)
  - Hypersomnia [None]
  - Neck pain [None]
  - Swelling [None]
  - Feeling abnormal [None]
  - Oropharyngeal pain [None]
  - Malaise [None]
  - Gait disturbance [None]
  - Fatigue [None]
  - Flatulence [None]
  - Hypoaesthesia [None]
  - Pruritus [None]
  - Heart rate decreased [None]
  - Cough [None]
  - Dizziness [None]
